FAERS Safety Report 4758571-1 (Version None)
Quarter: 2005Q3

REPORT INFORMATION
  Report Type: 
  Country: None (occurrence: None)
  Receive Date: 20050826
  Receipt Date: 20050808
  Transmission Date: 20060218
  Serious: Yes (Hospitalization)
  Sender: FDA-Public Use
  Company Number: ENT 2005-0112

PATIENT
  Age: 67 Year
  Sex: Female

DRUGS (2)
  1. COMTESS (ENTACAPONE) [Suspect]
     Indication: PARKINSON'S DISEASE
     Dosage: 400 MG ORAL
     Route: 048
     Dates: start: 20050519, end: 20050527
  2. STALEVO 100 [Suspect]
     Indication: PARKINSON'S DISEASE
     Dosage: 400 MG ORAL
     Route: 048
     Dates: start: 20050527, end: 20050531

REACTIONS (3)
  - EPIGASTRIC DISCOMFORT [None]
  - HEPATIC ENZYME INCREASED [None]
  - MALAISE [None]
